FAERS Safety Report 9038395 (Version 1)
Quarter: 2013Q1

REPORT INFORMATION
  Report Type: Report from Study
  Country: US (occurrence: US)
  Receive Date: 20130130
  Receipt Date: 20130130
  Transmission Date: 20140127
  Serious: No
  Sender: FDA-Public Use
  Company Number: US-ABBOTT-12P-163-0951574-00

PATIENT
  Age: 45 Year
  Sex: Female

DRUGS (5)
  1. HUMIRA 40 MG/0.8 ML PEN [Suspect]
     Indication: CROHN^S DISEASE
     Route: 050
     Dates: start: 201011
  2. FLONASE [Concomitant]
     Indication: SEASONAL ALLERGY
     Dosage: 1 INH IN EACH NOSTRIL DAILY
     Route: 045
  3. PRILOSEC OTC [Concomitant]
     Indication: DYSPEPSIA
     Dosage: 1 TABLET DAILY
  4. ZYRTEC OTC [Concomitant]
     Indication: SEASONAL ALLERGY
     Dosage: 1 TABLET DAILY
  5. LIALDA [Concomitant]
     Indication: CROHN^S DISEASE
     Dosage: 2 TABLETS DAILY

REACTIONS (2)
  - Laryngitis [Not Recovered/Not Resolved]
  - Sinusitis [Not Recovered/Not Resolved]
